FAERS Safety Report 14390390 (Version 2)
Quarter: 2021Q3

REPORT INFORMATION
  Report Type: Report from Study
  Country: JP (occurrence: JP)
  Receive Date: 20180116
  Receipt Date: 20210823
  Transmission Date: 20211014
  Serious: Yes (Hospitalization, Other)
  Sender: FDA-Public Use
  Company Number: JP-AMGEN-JPNCT2018005699

PATIENT
  Age: 74 Year
  Sex: Female
  Weight: 42 kg

DRUGS (13)
  1. ARTIST [Concomitant]
     Active Substance: CARVEDILOL
     Indication: AORTIC ANEURYSM
     Dosage: 5 MG, UNK
     Route: 048
     Dates: end: 20160817
  2. OLMETEC [Concomitant]
     Active Substance: OLMESARTAN MEDOXOMIL
     Indication: AORTIC ANEURYSM
     Dosage: 40 MG, UNK
     Route: 048
     Dates: end: 20160817
  3. OLMETEC [Concomitant]
     Active Substance: OLMESARTAN MEDOXOMIL
     Indication: HYPERTENSION
     Dosage: UNK
  4. DARBEPOETIN ALFA [Suspect]
     Active Substance: DARBEPOETIN ALFA
     Indication: MYELODYSPLASTIC SYNDROME
     Dosage: 120 MICROGRAM, QWK
     Route: 058
     Dates: start: 20160413, end: 20160418
  5. NICARDIPINE HYDROCHLORIDE. [Concomitant]
     Active Substance: NICARDIPINE HYDROCHLORIDE
     Indication: AORTIC ANEURYSM
     Dosage: 50 MG, UNK
     Route: 042
     Dates: start: 20160519, end: 20160523
  6. DARBEPOETIN ALFA [Suspect]
     Active Substance: DARBEPOETIN ALFA
     Dosage: 240 MICROGRAM, QWK
     Route: 058
     Dates: start: 20160719, end: 20160726
  7. LIVALO [Concomitant]
     Active Substance: PITAVASTATIN CALCIUM
     Indication: DYSLIPIDAEMIA
     Dosage: 2 MG, UNK
     Route: 048
     Dates: end: 20160817
  8. DARBEPOETIN ALFA [Suspect]
     Active Substance: DARBEPOETIN ALFA
     Dosage: 120 MICROGRAM, QWK
     Route: 058
     Dates: start: 20160502, end: 20160518
  9. PRIMOBOLAN [Concomitant]
     Active Substance: METHENOLONE
     Indication: MYELODYSPLASTIC SYNDROME
     Dosage: 10 MG, UNK
     Route: 048
     Dates: start: 20160406, end: 20160817
  10. METHYCOBAL [Concomitant]
     Active Substance: METHYLCOBALAMIN
     Dosage: 1000 MUG, UNK
     Route: 048
     Dates: start: 20160406, end: 20160817
  11. L?CARBOCISTEINE [Concomitant]
     Active Substance: CARBOCYSTEINE
     Indication: BRONCHIECTASIS
     Dosage: 1500 MG, UNK
     Route: 048
     Dates: end: 20160817
  12. ARTIST [Concomitant]
     Active Substance: CARVEDILOL
     Indication: HYPERTENSION
     Dosage: UNK, UNK
  13. BAYASPIRIN [Concomitant]
     Active Substance: ASPIRIN
     Indication: AORTIC ANEURYSM
     Dosage: 100 MG, UNK
     Route: 048
     Dates: end: 20160817

REACTIONS (4)
  - Acute kidney injury [Recovering/Resolving]
  - Aortic aneurysm rupture [Recovered/Resolved]
  - Blood creatinine increased [Recovering/Resolving]
  - Blood urea increased [Recovering/Resolving]

NARRATIVE: CASE EVENT DATE: 20160518
